FAERS Safety Report 9231649 (Version 1)
Quarter: 2013Q2

REPORT INFORMATION
  Report Type: Spontaneous
  Country: US (occurrence: US)
  Receive Date: 20130415
  Receipt Date: 20130415
  Transmission Date: 20140414
  Serious: Yes (Other)
  Sender: FDA-Public Use
  Company Number: US-ROCHE-687559

PATIENT
  Age: 17 Year
  Sex: Male
  Weight: 68.9 kg

DRUGS (2)
  1. ACCUTANE [Suspect]
     Indication: ACNE
     Dosage: STRENGTH: 10 MG AND 20 MG/CAPSULE
     Route: 048
     Dates: start: 20010904, end: 20011004
  2. ACCUTANE [Suspect]
     Route: 048
     Dates: start: 20011004, end: 200202

REACTIONS (10)
  - Inflammatory bowel disease [Unknown]
  - Colitis ulcerative [Unknown]
  - Irritable bowel syndrome [Unknown]
  - Crohn^s disease [Unknown]
  - Gastric disorder [Unknown]
  - Dry skin [Unknown]
  - Abdominal pain upper [Unknown]
  - Blood bilirubin increased [Unknown]
  - Blood cholesterol increased [Recovered/Resolved]
  - Low density lipoprotein increased [Recovered/Resolved]
